FAERS Safety Report 7885097-9 (Version None)
Quarter: 2011Q4

REPORT INFORMATION
  Report Type: 
  Country: None (occurrence: None)
  Receive Date: 20111102
  Receipt Date: 20111028
  Transmission Date: 20120403
  Serious: Yes (Other)
  Sender: FDA-Public Use
  Company Number: US-PFIZER INC-2008056825

PATIENT
  Sex: Female

DRUGS (9)
  1. ASPIRIN [Concomitant]
     Dosage: UNK
  2. SERTRALINE HYDROCHLORIDE [Concomitant]
     Dosage: UNK
  3. XANAX [Suspect]
     Dosage: UNK
  4. PROTONIX [Suspect]
     Dosage: UNK
  5. CARDIZEM [Concomitant]
     Indication: HYPERTENSION
     Dosage: 300 MG, UNK
  6. VASOTEC [Concomitant]
     Indication: HYPERTENSION
     Dosage: UNK
  7. NITROSTAT [Suspect]
     Dosage: UNK
  8. PLAVIX [Concomitant]
     Dosage: 75 MG, UNK
  9. LIPITOR [Suspect]
     Indication: CARDIAC DISORDER
     Dosage: 40 MG, 1X/DAY
     Route: 048

REACTIONS (8)
  - FATIGUE [None]
  - EYE OPERATION [None]
  - VISUAL ACUITY REDUCED [None]
  - PHARYNGEAL MASS [None]
  - STRESS [None]
  - FEAR [None]
  - MACULAR DEGENERATION [None]
  - CATARACT [None]
